FAERS Safety Report 6899318-2 (Version None)
Quarter: 2010Q3

REPORT INFORMATION
  Report Type: 
  Country: None (occurrence: None)
  Receive Date: 20100802
  Receipt Date: 20100729
  Transmission Date: 20110219
  Serious: Yes (Hospitalization)
  Sender: FDA-Public Use
  Company Number: DE-BRISTOL-MYERS SQUIBB COMPANY-15204001

PATIENT
  Age: 62 Year
  Sex: Male
  Weight: 88 kg

DRUGS (6)
  1. CISPLATIN [Suspect]
     Indication: NON-SMALL CELL LUNG CANCER
     Dosage: 18JUN10 RECEIVED 2ND AND RECENT INFUSION HELD ON UNK DATE
     Route: 042
     Dates: start: 20100528
  2. PEMETREXED DISODIUM [Suspect]
     Indication: NON-SMALL CELL LUNG CANCER
     Dosage: ON 18JUN10 RECEIVED 2ND AND RECENT INFUSION HELD ON UNK DATE
     Route: 042
     Dates: start: 20100528
  3. NEXIUM [Concomitant]
     Indication: PROPHYLAXIS
     Dates: start: 20100503
  4. OXAZEPAM [Concomitant]
     Indication: INSOMNIA
     Route: 065
     Dates: start: 20100503
  5. FOLSAN [Concomitant]
     Indication: PROPHYLAXIS
     Route: 065
     Dates: start: 20100520
  6. MAGNESIUM VERLA [Concomitant]
     Indication: PROPHYLAXIS
     Route: 065
     Dates: start: 20100617

REACTIONS (1)
  - PULMONARY EMBOLISM [None]
